FAERS Safety Report 7497239-8 (Version None)
Quarter: 2011Q2

REPORT INFORMATION
  Report Type: 
  Country: None (occurrence: None)
  Receive Date: 20110523
  Receipt Date: 20110520
  Transmission Date: 20111010
  Serious: No
  Sender: FDA-Public Use
  Company Number: US-PFIZER INC-2011109697

PATIENT
  Sex: Male
  Weight: 85.261 kg

DRUGS (5)
  1. METOPROLOL [Concomitant]
     Dosage: UNK
  2. ATACAND [Concomitant]
     Dosage: UNK
  3. LIPITOR [Suspect]
     Indication: VASCULAR GRAFT
     Dosage: 20 MG, DAILY
     Route: 048
     Dates: start: 20081101
  4. PLAVIX [Concomitant]
     Dosage: UNK
  5. ACETYLSALICYLIC ACID [Concomitant]
     Dosage: 325 MG, DAILY

REACTIONS (2)
  - HYPERHIDROSIS [None]
  - NOCTURIA [None]
